FAERS Safety Report 11497524 (Version 3)
Quarter: 2015Q4

REPORT INFORMATION
  Report Type: Spontaneous
  Country: US (occurrence: US)
  Receive Date: 20150911
  Receipt Date: 20151014
  Transmission Date: 20160304
  Serious: Yes (Hospitalization, Other)
  Sender: FDA-Public Use
  Company Number: US-DSJP-DSU-2015-119463

PATIENT

DRUGS (2)
  1. BENICAR HCT [Suspect]
     Active Substance: HYDROCHLOROTHIAZIDE\OLMESARTAN MEDOXOMIL
     Indication: HYPERTENSION
     Dosage: 40/25 MG, QD
     Route: 048
     Dates: start: 2000, end: 2012
  2. BENICAR [Suspect]
     Active Substance: OLMESARTAN MEDOXOMIL
     Indication: BLOOD PRESSURE INCREASED
     Dosage: 20 MG, QD
     Route: 048
     Dates: start: 20120719

REACTIONS (16)
  - Constipation [Unknown]
  - Gastrooesophageal reflux disease [Unknown]
  - Anxiety [Unknown]
  - Small intestinal obstruction [Unknown]
  - Abscess intestinal [Unknown]
  - Pelvic abscess [Unknown]
  - Malabsorption [Unknown]
  - Dizziness [Unknown]
  - Gastrointestinal inflammation [Unknown]
  - Diverticulitis [Unknown]
  - Renal mass [Unknown]
  - Nephrolithiasis [Unknown]
  - Dyspnoea [Unknown]
  - Umbilical hernia [Unknown]
  - Hiatus hernia [Unknown]
  - Depression [Unknown]

NARRATIVE: CASE EVENT DATE: 2012
